FAERS Safety Report 6748412-5 (Version None)
Quarter: 2010Q2

REPORT INFORMATION
  Report Type: 
  Country: None (occurrence: None)
  Receive Date: 20100526
  Receipt Date: 20090803
  Transmission Date: 20101027
  Serious: Yes (Other)
  Sender: FDA-Public Use
  Company Number: 281942

PATIENT
  Age: 49 Year
  Sex: Female

DRUGS (2)
  1. VAGIFEM [Suspect]
     Indication: ATROPHIC VULVOVAGINITIS
     Dosage: VAGINAL ; QOD, VAGINAL
     Route: 067
     Dates: start: 20060101, end: 20080801
  2. VAGIFEM [Suspect]
     Indication: ATROPHIC VULVOVAGINITIS
     Dosage: VAGINAL ; QOD, VAGINAL
     Route: 067
     Dates: start: 20080801, end: 20081102

REACTIONS (1)
  - DRUG HYPERSENSITIVITY [None]
